FAERS Safety Report 4366585-9 (Version None)
Quarter: 2004Q2

REPORT INFORMATION
  Report Type: 
  Country: None (occurrence: None)
  Receive Date: 20040527
  Receipt Date: 20040212
  Transmission Date: 20050107
  Serious: Yes (Other)
  Sender: FDA-Public Use
  Company Number: GB-GLAXOSMITHKLINE-B0323094A

PATIENT
  Age: 53 Year
  Sex: Female

DRUGS (4)
  1. ZYBAN [Suspect]
     Route: 048
     Dates: start: 20040204, end: 20040213
  2. ERYMAX [Concomitant]
     Indication: TOOTH ABSCESS
     Dosage: 250MG TWICE PER DAY
     Route: 048
     Dates: start: 20040210, end: 20040217
  3. COCODAMOL [Concomitant]
     Indication: HEADACHE
     Route: 048
  4. PREMARIN [Concomitant]
     Indication: HORMONE REPLACEMENT THERAPY
     Route: 048
     Dates: start: 19990901

REACTIONS (5)
  - DERMATITIS ALLERGIC [None]
  - HALLUCINATION [None]
  - HYPERSOMNIA [None]
  - SLEEP DISORDER [None]
  - STRESS SYMPTOMS [None]
